FAERS Safety Report 10617823 (Version 2)
Quarter: 2017Q2

REPORT INFORMATION
  Report Type: Report from Study
  Country: BR (occurrence: BR)
  Receive Date: 20141201
  Receipt Date: 20170504
  Transmission Date: 20170829
  Serious: Yes (Death, Hospitalization, Other)
  Sender: FDA-Public Use
  Company Number: BR-ALEXION PHARMACEUTICALS INC.-A201404548

PATIENT
  Age: 2 Year
  Sex: Male

DRUGS (1)
  1. SOLIRIS [Suspect]
     Active Substance: ECULIZUMAB
     Indication: HAEMOLYTIC URAEMIC SYNDROME
     Dosage: 300 MG, Q21DAYS
     Route: 042
     Dates: start: 20140621, end: 20141031

REACTIONS (2)
  - Cardio-respiratory arrest [Fatal]
  - Device occlusion [Unknown]

NARRATIVE: CASE EVENT DATE: 20141109
